FAERS Safety Report 9597917 (Version 1)
Quarter: 2013Q4

REPORT INFORMATION
  Report Type: Spontaneous
  Country: US (occurrence: US)
  Receive Date: 20131004
  Receipt Date: 20131004
  Transmission Date: 20140711
  Serious: No
  Sender: FDA-Public Use
  Company Number: US-AMGEN-USASP2013021806

PATIENT
  Age: 28 Year
  Sex: Male
  Weight: 79.37 kg

DRUGS (4)
  1. ENBREL [Suspect]
     Indication: PRODUCT USED FOR UNKNOWN INDICATION
     Dosage: 50 UNK, UNK
  2. LOSARTAN POTASSIUM [Concomitant]
     Dosage: 25 MG, UNK
  3. MULTIVITAMINS, PLAIN [Concomitant]
     Dosage: UNK
  4. OMEGA 3                            /01334101/ [Concomitant]
     Dosage: UNK

REACTIONS (1)
  - Gastroenteritis viral [Unknown]
